FAERS Safety Report 8629110 (Version 3)
Quarter: 2013Q1

REPORT INFORMATION
  Report Type: Report from Study
  Country: JP (occurrence: JP)
  Receive Date: 20120621
  Receipt Date: 20130329
  Transmission Date: 20140127
  Serious: Yes (Disabling, Other)
  Sender: FDA-Public Use
  Company Number: JP-B.I. PHARMACEUTICALS,INC./RIDGEFIELD-2012-EU-03085GD

PATIENT
  Sex: Male

DRUGS (4)
  1. BI-SIFROL [Suspect]
     Indication: PARKINSON^S DISEASE
     Dosage: 3 MG
     Route: 048
     Dates: start: 20040216
  2. PERMAX [Suspect]
     Indication: PARKINSON^S DISEASE
     Dosage: 3750 MCG
     Route: 048
     Dates: start: 20010423, end: 20070824
  3. EC-DOPARL [Suspect]
     Indication: PARKINSON^S DISEASE
     Dosage: 300 MG
     Route: 048
     Dates: start: 20040607
  4. FP [Concomitant]
     Indication: PARKINSON^S DISEASE
     Dosage: 10 MG
     Route: 048
     Dates: start: 20050908, end: 20070824

REACTIONS (4)
  - Communication disorder [Unknown]
  - Hypersexuality [Unknown]
  - Pathological gambling [Not Recovered/Not Resolved]
  - Automatism [Recovered/Resolved]
